FAERS Safety Report 26179073 (Version 1)
Quarter: 2025Q4

REPORT INFORMATION
  Report Type: Spontaneous
  Country: US (occurrence: US)
  Receive Date: 20251219
  Receipt Date: 20251219
  Transmission Date: 20260118
  Serious: Yes (Other)
  Sender: RANBAXY
  Company Number: US-SUN PHARMACEUTICAL INDUSTRIES LTD-2025R1-542613

PATIENT
  Age: 21 Year
  Sex: Female

DRUGS (2)
  1. METHYLPHENIDATE [Suspect]
     Active Substance: METHYLPHENIDATE
     Indication: Narcolepsy
     Dosage: 5 MILLIGRAM
     Route: 065
  2. SODIUM OXYBATE [Concomitant]
     Active Substance: SODIUM OXYBATE
     Indication: Narcolepsy
     Dosage: 3 MILLIGRAM (11 PM, 1 AM, AND 4 AM)
     Route: 065

REACTIONS (1)
  - Obstructive sleep apnoea syndrome [Recovering/Resolving]
